FAERS Safety Report 22852121 (Version 12)
Quarter: 2025Q1

REPORT INFORMATION
  Report Type: Report from Study
  Country: US (occurrence: US)
  Receive Date: 20230823
  Receipt Date: 20250306
  Transmission Date: 20250409
  Serious: Yes (Other)
  Sender: TAKEDA
  Company Number: US-TAKEDA-2023TUS056160

PATIENT
  Age: 52 Year
  Sex: Female
  Weight: 56 kg

DRUGS (21)
  1. GLASSIA [Suspect]
     Active Substance: .ALPHA.1-PROTEINASE INHIBITOR HUMAN
     Indication: Alpha-1 antitrypsin deficiency
     Dosage: 60 MILLIGRAM/KILOGRAM, 1/WEEK
     Dates: start: 20230501
  2. GLASSIA [Suspect]
     Active Substance: .ALPHA.1-PROTEINASE INHIBITOR HUMAN
     Dosage: 60 MILLIGRAM/KILOGRAM, 1/WEEK
     Dates: start: 20230515
  3. DIPHENHYDRAMINE HYDROCHLORIDE [Concomitant]
     Active Substance: DIPHENHYDRAMINE HYDROCHLORIDE
  4. ALBUTEROL SULFATE [Concomitant]
     Active Substance: ALBUTEROL SULFATE
  5. EPINEPHRINE [Concomitant]
     Active Substance: EPINEPHRINE
  6. SODIUM CHLORIDE [Concomitant]
     Active Substance: SODIUM CHLORIDE
  7. IBUPROFEN [Concomitant]
     Active Substance: IBUPROFEN
  8. SINGULAIR [Concomitant]
     Active Substance: MONTELUKAST SODIUM
  9. ZINC [Concomitant]
     Active Substance: ZINC
  10. OXYGEN [Concomitant]
     Active Substance: OXYGEN
  11. VITAMIN C [Concomitant]
     Active Substance: ASCORBIC ACID
  12. LIDOCAINE [Concomitant]
     Active Substance: LIDOCAINE
  13. BREZTRI [Concomitant]
     Active Substance: BUDESONIDE\FORMOTEROL\GLYCOPYRROLATE
  14. ALLEGRA-D [Concomitant]
     Active Substance: FEXOFENADINE HYDROCHLORIDE\PSEUDOEPHEDRINE HYDROCHLORIDE
  15. ZYRTEC [Concomitant]
     Active Substance: CETIRIZINE HYDROCHLORIDE
  16. IPRATROPIUM BROMIDE [Concomitant]
     Active Substance: IPRATROPIUM BROMIDE
  17. SODIUM CHLORIDE [Concomitant]
     Active Substance: SODIUM CHLORIDE
  18. OHTUVAYRE [Concomitant]
     Active Substance: ENSIFENTRINE
  19. LIDOCAINE\PRILOCAINE [Concomitant]
     Active Substance: LIDOCAINE\PRILOCAINE
  20. DUPIXENT [Concomitant]
     Active Substance: DUPILUMAB
  21. CAYSTON [Concomitant]
     Active Substance: AZTREONAM

REACTIONS (28)
  - Infusion site thrombosis [Unknown]
  - Bronchiectasis [Unknown]
  - Multiple allergies [Unknown]
  - Haemoptysis [Recovered/Resolved]
  - Crepitations [Not Recovered/Not Resolved]
  - Anxiety [Not Recovered/Not Resolved]
  - Rhonchi [Not Recovered/Not Resolved]
  - Contusion [Not Recovered/Not Resolved]
  - Insurance issue [Unknown]
  - Respiratory disorder [Recovered/Resolved]
  - Depression [Not Recovered/Not Resolved]
  - Drug ineffective [Unknown]
  - Sinus congestion [Unknown]
  - Constipation [Unknown]
  - Seasonal allergy [Unknown]
  - Sensitivity to weather change [Unknown]
  - Lacrimation increased [Unknown]
  - Pseudomonas test positive [Unknown]
  - Respiratory tract infection [Unknown]
  - Road traffic accident [Unknown]
  - Pain in extremity [Unknown]
  - Inappropriate schedule of product administration [Unknown]
  - Pruritus [Not Recovered/Not Resolved]
  - Rhinorrhoea [Unknown]
  - Rash [Not Recovered/Not Resolved]
  - Dyspnoea [Not Recovered/Not Resolved]
  - Fatigue [Not Recovered/Not Resolved]
  - Cough [Recovered/Resolved]

NARRATIVE: CASE EVENT DATE: 20230912
